FAERS Safety Report 9088337 (Version 1)
Quarter: 2013Q1

REPORT INFORMATION
  Report Type: Spontaneous
  Country: US (occurrence: US)
  Receive Date: 20130130
  Receipt Date: 20130130
  Transmission Date: 20140127
  Serious: Yes (Hospitalization)
  Sender: FDA-Public Use
  Company Number: US-ABBOTT-12P-163-0951599-00

PATIENT
  Sex: Female
  Weight: 52.66 kg

DRUGS (1)
  1. HUMIRA 40 MG/ 0.8 ML PRE-FILLED SYRINGE [Suspect]
     Indication: CROHN^S DISEASE
     Dates: start: 201101

REACTIONS (4)
  - Surgery [Unknown]
  - Angioedema [Recovered/Resolved]
  - Glossodynia [Recovered/Resolved]
  - Tongue disorder [Recovered/Resolved]
